FAERS Safety Report 9785758 (Version 1)
Quarter: 2013Q4

REPORT INFORMATION
  Report Type: Spontaneous
  Country: CN (occurrence: None)
  Receive Date: 20131223
  Receipt Date: 20131223
  Transmission Date: 20140711
  Serious: Yes (Other)
  Sender: FDA-Public Use
  Company Number: 2013P1021970

PATIENT
  Age: 47 Year
  Sex: Female
  Weight: 60 kg

DRUGS (1)
  1. METOPROLOL [Suspect]
     Indication: VENTRICULAR ARRHYTHMIA
     Route: 048

REACTIONS (2)
  - Ventricular arrhythmia [None]
  - Condition aggravated [None]
